FAERS Safety Report 5950369-1 (Version None)
Quarter: 2008Q4

REPORT INFORMATION
  Report Type: 
  Country: None (occurrence: None)
  Receive Date: 20081112
  Receipt Date: 20081105
  Transmission Date: 20090506
  Serious: Yes (Hospitalization, Other)
  Sender: FDA-Public Use
  Company Number: PHHY2008FR25785

PATIENT
  Sex: Female

DRUGS (3)
  1. ACLASTA [Suspect]
     Indication: OSTEOPOROSIS
     Dosage: UNK
     Dates: start: 20081009
  2. APROVEL [Concomitant]
  3. IMOVANE [Concomitant]

REACTIONS (6)
  - ASTHENIA [None]
  - BONE PAIN [None]
  - ENDOSCOPY UPPER GASTROINTESTINAL TRACT [None]
  - HEADACHE [None]
  - MALLORY-WEISS SYNDROME [None]
  - VOMITING [None]
